FAERS Safety Report 20240767 (Version 1)
Quarter: 2021Q4

REPORT INFORMATION
  Report Type: Spontaneous
  Country: US (occurrence: None)
  Receive Date: 20211228
  Receipt Date: 20211228
  Transmission Date: 20220303
  Serious: Yes (Hospitalization)
  Sender: FDA-Public Use
  Company Number: None

PATIENT
  Age: 52 Year
  Sex: Male
  Weight: 133.8 kg

DRUGS (1)
  1. CASIRIVIMAB\IMDEVIMAB [Suspect]
     Active Substance: CASIRIVIMAB\IMDEVIMAB
     Indication: COVID-19
     Route: 042
     Dates: start: 20211220

REACTIONS (9)
  - Fall [None]
  - Feeling hot [None]
  - Head injury [None]
  - Face injury [None]
  - Pallor [None]
  - Cold sweat [None]
  - Asthenia [None]
  - Urinary incontinence [None]
  - Anal incontinence [None]

NARRATIVE: CASE EVENT DATE: 20211220
